FAERS Safety Report 9503108 (Version 2)
Quarter: 2013Q4

REPORT INFORMATION
  Report Type: Spontaneous
  Country: AU (occurrence: AU)
  Receive Date: 20130906
  Receipt Date: 20131105
  Transmission Date: 20140711
  Serious: Yes (Hospitalization, Other)
  Sender: FDA-Public Use
  Company Number: AU-PFIZER INC-2013254808

PATIENT
  Age: 74 Year
  Sex: Female
  Weight: 87.9 kg

DRUGS (6)
  1. LYRICA [Suspect]
     Indication: NEURALGIA
     Dosage: 175 MG, 2X/DAY
     Route: 048
     Dates: start: 201305
  2. LYRICA [Suspect]
     Dosage: 25 MG, UNK
     Route: 048
  3. LYRICA [Suspect]
     Dosage: 75 MG, 2X/DAY MORNING AND NIGHT
     Route: 048
  4. FENTANYL [Concomitant]
     Dosage: 12 MG, UNK
  5. DUROGESIC [Concomitant]
     Indication: PAIN
     Dosage: UNK
     Route: 061
  6. DUROGESIC [Concomitant]
     Dosage: 25 MG, 1X/DAY
     Route: 061
     Dates: start: 201305

REACTIONS (5)
  - Fluid retention [Unknown]
  - Bedridden [Unknown]
  - Oedema peripheral [Recovered/Resolved]
  - Drug withdrawal syndrome [Unknown]
  - Feeling abnormal [Unknown]
